FAERS Safety Report 8799241 (Version 3)
Quarter: 2012Q4

REPORT INFORMATION
  Report Type: 
  Country: US (occurrence: US)
  Receive Date: 20120920
  Receipt Date: 20121219
  Transmission Date: 20130627
  Serious: Yes (Other)
  Sender: FDA-Public Use
  Company Number: US-PFIZER INC-2012232753

PATIENT
  Sex: Male

DRUGS (3)
  1. CHANTIX [Suspect]
     Indication: SMOKER
     Dosage: 0.5 mg, 1x/day
     Route: 048
     Dates: start: 2007
  2. CHANTIX [Suspect]
     Dosage: 1tab, 2x/day
     Route: 048
  3. CHANTIX [Suspect]
     Dosage: 2tabs, 2x/day
     Route: 048

REACTIONS (3)
  - Aneurysm [Unknown]
  - Haemorrhage intracranial [Unknown]
  - Headache [Unknown]
